FAERS Safety Report 7675736-X (Version None)
Quarter: 2011Q3

REPORT INFORMATION
  Report Type: 
  Country: None (occurrence: None)
  Receive Date: 20110810
  Receipt Date: 20110808
  Transmission Date: 20111222
  Serious: Yes (Life-Threatening, Hospitalization)
  Sender: FDA-Public Use
  Company Number: DE-ABBOTT-11P-062-0844665-00

PATIENT
  Age: 55 Year
  Sex: Female
  Weight: 98 kg

DRUGS (5)
  1. METOPROLOL TARTRATE [Concomitant]
     Indication: HYPERTENSION
     Dosage: 95MG DAILY
     Route: 048
     Dates: start: 20090510
  2. HUMIRA [Suspect]
     Indication: CROHN'S DISEASE
     Route: 058
     Dates: start: 20110523, end: 20110628
  3. PREDNISOLONE [Concomitant]
     Indication: CROHN'S DISEASE
     Dosage: 80 - 30 MG DAILY
  4. PANTOPRAZOLE [Concomitant]
     Indication: PRODUCT USED FOR UNKNOWN INDICATION
     Dosage: 40MG DAILY
     Route: 048
     Dates: start: 20080920
  5. SIMVASTATIN [Concomitant]
     Indication: HYPERLIPIDAEMIA
     Dosage: 20MG DAILY
     Route: 048
     Dates: start: 20080920

REACTIONS (1)
  - CEREBRAL HAEMORRHAGE [None]
